FAERS Safety Report 6233476-8 (Version None)
Quarter: 2009Q2

REPORT INFORMATION
  Report Type: 
  Country: None (occurrence: None)
  Receive Date: 20090617
  Receipt Date: 20090605
  Transmission Date: 20091009
  Serious: Yes (Hospitalization, Other)
  Sender: FDA-Public Use
  Company Number: PL-WYE-H09434509

PATIENT
  Sex: Male
  Weight: 63 kg

DRUGS (7)
  1. TEMSIROLIMUS [Suspect]
     Indication: RENAL CELL CARCINOMA
     Route: 042
     Dates: start: 20090330, end: 20090511
  2. TEMSIROLIMUS [Suspect]
     Route: 042
     Dates: start: 20090602
  3. PAMIDRONATE DISODIUM [Concomitant]
     Indication: METASTASIS
     Dosage: NOT PROVIDED
     Dates: start: 20081222
  4. KETOPROFEN [Concomitant]
     Indication: BONE PAIN
     Dosage: NOT PROVIDED
     Dates: start: 20080213
  5. TRAMADOL HCL [Concomitant]
     Indication: BONE PAIN
     Dosage: NOT PROVIDED
     Dates: start: 20081217
  6. BEVACIZUMAB [Suspect]
     Indication: RENAL CELL CARCINOMA
     Dosage: 630 MG ^BI-WEEKLY^
     Route: 042
     Dates: start: 20090330, end: 20090511
  7. BISOPROLOL [Concomitant]
     Indication: SINUS TACHYCARDIA
     Dosage: NOT PROVIDED
     Dates: start: 20081218

REACTIONS (2)
  - BRONCHOPNEUMONIA [None]
  - DIARRHOEA [None]
